FAERS Safety Report 25645821 (Version 1)
Quarter: 2025Q3

REPORT INFORMATION
  Report Type: Spontaneous
  Country: EU (occurrence: EU)
  Receive Date: 20250805
  Receipt Date: 20250805
  Transmission Date: 20251020
  Serious: Yes (Hospitalization, Other)
  Sender: BRACCO
  Company Number: None

PATIENT
  Age: 56 Year
  Sex: Female

DRUGS (1)
  1. IOPAMIRO [Suspect]
     Active Substance: IOPAMIDOL
     Indication: Computerised tomogram
     Route: 042
     Dates: start: 20250513, end: 20250513

REACTIONS (6)
  - Hypersensitivity [Recovering/Resolving]
  - Sneezing [Recovered/Resolved]
  - Flushing [Recovering/Resolving]
  - Urticaria [Recovering/Resolving]
  - Dyspnoea [Recovering/Resolving]
  - Fall [Recovered/Resolved]

NARRATIVE: CASE EVENT DATE: 20250513
